FAERS Safety Report 8157111-7 (Version None)
Quarter: 2012Q1

REPORT INFORMATION
  Report Type: 
  Country: None (occurrence: None)
  Receive Date: 20120222
  Receipt Date: 20120213
  Transmission Date: 20120608
  Serious: Yes (Life-Threatening, Hospitalization, Other)
  Sender: FDA-Public Use
  Company Number: PHHY2010JP50217

PATIENT
  Age: 77 Year
  Sex: Female
  Weight: 36 kg

DRUGS (28)
  1. PREDNISOLONE [Suspect]
     Dosage: 5 MG DAILY
     Route: 048
     Dates: start: 20100422
  2. NOVOLIN R [Concomitant]
     Dosage: 10 DF, UNK
     Dates: start: 20090826
  3. NOVOLIN R [Concomitant]
     Dosage: 14 DF, UNK
  4. GLUFAST [Concomitant]
     Dosage: 40 MG, UNK
     Route: 048
     Dates: start: 20100826
  5. EXJADE [Suspect]
     Indication: MYELODYSPLASTIC SYNDROME
     Dosage: 750 MG, QD
     Route: 048
     Dates: start: 20090916, end: 20110403
  6. AZOPT [Concomitant]
  7. PREDNISOLONE [Suspect]
     Dosage: 8 MG, DAILY
     Route: 048
     Dates: end: 20090929
  8. FAMOTIDINE [Concomitant]
     Indication: GASTRITIS PROPHYLAXIS
     Dosage: 40 MG, UNK
     Route: 048
  9. CLARITHROMYCIN [Concomitant]
     Indication: PROPHYLAXIS
     Dosage: 200 MG, UNK
     Route: 048
     Dates: start: 20100823
  10. XALATAN [Concomitant]
  11. PREDNISOLONE [Suspect]
     Dosage: 7 MG, DAILY
     Route: 048
     Dates: start: 20090930, end: 20100202
  12. AMARYL [Concomitant]
     Dosage: 0.5 MG, UNK
     Route: 048
     Dates: start: 20100604, end: 20100820
  13. TIMOPTOL-XE [Concomitant]
  14. RED BLOOD CELLS, CONCENTRATED [Concomitant]
     Dosage: 4 U, EVERY 2 WEEKS
     Dates: start: 20100916, end: 20110831
  15. REVLIMID [Suspect]
     Indication: MYELODYSPLASTIC SYNDROME
     Dosage: 5 MG, UNK
     Dates: start: 20110412
  16. NOVOLIN R [Concomitant]
     Dosage: 12 DF, UNK
     Dates: end: 20091124
  17. PLATELETS [Concomitant]
     Dosage: 15 U, EVERY 3 DAYS
     Dates: start: 20100420, end: 20110511
  18. REVLIMID [Suspect]
     Dosage: 5 MG, UNK
  19. MUCODYNE [Concomitant]
     Indication: PROPHYLAXIS
     Dosage: 1500 MG, UNK
     Route: 048
     Dates: start: 20100819
  20. EXJADE [Suspect]
     Dosage: 625 MG, EVERY OTHER DAY
     Route: 048
     Dates: start: 20110523
  21. DESFERAL [Concomitant]
     Indication: IRON OVERLOAD
     Dosage: 1000 MG, UNK
     Route: 030
     Dates: start: 20071227, end: 20090902
  22. RED BLOOD CELLS, CONCENTRATED [Concomitant]
     Dosage: 4 U, EVERY THREE WEEKS
  23. ALENDRONATE SODIUM [Concomitant]
     Dosage: 5 MG, UNK
     Route: 048
     Dates: start: 20100412
  24. EQUA [Concomitant]
  25. PLATELETS [Concomitant]
     Dosage: 15 U, EVERY 3 DAYS
     Dates: start: 20110519, end: 20110605
  26. EXJADE [Suspect]
     Dosage: 625 MG, QD
     Route: 048
     Dates: start: 20110507, end: 20110222
  27. PREDNISOLONE [Suspect]
     Dosage: 6 MG, DAILY
     Route: 048
     Dates: start: 20100203, end: 20100421
  28. VOGLIBOSE [Concomitant]

REACTIONS (13)
  - BACK PAIN [None]
  - PNEUMONIA [None]
  - NEUTROPENIA [None]
  - THROMBOCYTOPENIA [None]
  - BLOOD CREATININE INCREASED [None]
  - URINARY TRACT INFECTION [None]
  - BLOOD ALKALINE PHOSPHATASE INCREASED [None]
  - RENAL IMPAIRMENT [None]
  - SEPSIS [None]
  - GENERAL PHYSICAL HEALTH DETERIORATION [None]
  - HERPES ZOSTER [None]
  - PUBIS FRACTURE [None]
  - DEHYDRATION [None]
